FAERS Safety Report 9113167 (Version 1)
Quarter: 2013Q1

REPORT INFORMATION
  Report Type: Spontaneous
  Country: CA (occurrence: CA)
  Receive Date: 20130211
  Receipt Date: 20130211
  Transmission Date: 20140127
  Serious: Yes (Hospitalization, Other)
  Sender: FDA-Public Use
  Company Number: CA-AMGEN-CANSP2013007444

PATIENT
  Age: 35 Year
  Sex: Male

DRUGS (4)
  1. ENBREL [Suspect]
     Indication: ANKYLOSING SPONDYLITIS
     Dosage: UNK
     Dates: start: 20081201
  2. CODEIN [Concomitant]
     Dosage: UNK
  3. BIOXINE [Concomitant]
     Dosage: UNK
  4. CORTISONE [Concomitant]
     Dosage: UNK

REACTIONS (6)
  - Pulmonary function test abnormal [Not Recovered/Not Resolved]
  - Oesophagitis [Not Recovered/Not Resolved]
  - Upper respiratory tract infection [Not Recovered/Not Resolved]
  - Dyspnoea [Not Recovered/Not Resolved]
  - Sinus disorder [Not Recovered/Not Resolved]
  - Bronchitis [Not Recovered/Not Resolved]
